FAERS Safety Report 4338253-0 (Version None)
Quarter: 2004Q2

REPORT INFORMATION
  Report Type: 
  Country: None (occurrence: None)
  Receive Date: 20040413
  Receipt Date: 20040413
  Transmission Date: 20050107
  Serious: No
  Sender: FDA-Public Use
  Company Number: None

PATIENT
  Sex: Female
  Weight: 101.8325 kg

DRUGS (2)
  1. ERBITUX [Suspect]
     Indication: COLORECTAL CANCER METASTATIC
     Dosage: 876 MG/548 MG WEEK 1/WEE IV
     Route: 042
     Dates: start: 20040329, end: 20040412
  2. CAMPTOSAR [Suspect]
     Dosage: 274 MG WEEKLY IV
     Route: 042
     Dates: start: 20040329, end: 20040412

REACTIONS (1)
  - INTERNATIONAL NORMALISED RATIO DECREASED [None]
